FAERS Safety Report 15151023 (Version 2)
Quarter: 2018Q3

REPORT INFORMATION
  Report Type: Spontaneous
  Country: US (occurrence: US)
  Receive Date: 20180716
  Receipt Date: 20180903
  Transmission Date: 20181010
  Serious: No
  Sender: FDA-Public Use
  Company Number: US-SA-2018SA187875

PATIENT
  Age: 61 Year
  Sex: Female

DRUGS (2)
  1. ALIROCUMAB PREFILLED PEN [Suspect]
     Active Substance: ALIROCUMAB
     Dosage: UNK
     Dates: start: 20180607, end: 20180703
  2. PRALUENT [Suspect]
     Active Substance: ALIROCUMAB
     Dosage: UNK
     Route: 058
     Dates: start: 20180607, end: 20180703

REACTIONS (5)
  - Fatigue [Unknown]
  - Influenza like illness [Unknown]
  - Nausea [Unknown]
  - Alopecia [Unknown]
  - Dizziness [Unknown]

NARRATIVE: CASE EVENT DATE: 2018
